FAERS Safety Report 7398083-2 (Version None)
Quarter: 2011Q2

REPORT INFORMATION
  Report Type: 
  Country: None (occurrence: None)
  Receive Date: 20110406
  Receipt Date: 20110328
  Transmission Date: 20111010
  Serious: Yes (Other)
  Sender: FDA-Public Use
  Company Number: US-ELI_LILLY_AND_COMPANY-US201103008384

PATIENT
  Sex: Male

DRUGS (1)
  1. ALIMTA [Suspect]
     Indication: BLADDER CANCER
     Dosage: UNK
     Dates: start: 20110202

REACTIONS (2)
  - OFF LABEL USE [None]
  - HOSPICE CARE [None]
